FAERS Safety Report 9683975 (Version 1)
Quarter: 2013Q4

REPORT INFORMATION
  Report Type: Spontaneous
  Country: FR (occurrence: FR)
  Receive Date: 20131112
  Receipt Date: 20131112
  Transmission Date: 20140711
  Serious: Yes (Hospitalization)
  Sender: FDA-Public Use
  Company Number: FR-ASTRAZENECA-2013SE81837

PATIENT
  Age: 819 Month
  Sex: Male

DRUGS (6)
  1. INEXIUM [Suspect]
     Indication: GASTROOESOPHAGEAL REFLUX DISEASE
     Route: 048
     Dates: end: 20130522
  2. MOPRAL [Suspect]
     Indication: GASTROOESOPHAGEAL REFLUX DISEASE
     Route: 048
     Dates: start: 201202
  3. KARDEGIC [Concomitant]
  4. CARDENSIEL [Concomitant]
     Dosage: 2.5 MG IN THE MORNING AND 2.5 MG IN THE EVENING
  5. CRESTOR [Concomitant]
  6. MAGNE B6 [Concomitant]
     Dosage: TWO TABLETS EVERY MORNING AND EVERY EVENING

REACTIONS (6)
  - Hypokalaemia [Recovered/Resolved]
  - Hypocalcaemia [Recovered/Resolved]
  - Tremor [Recovered/Resolved]
  - Angina pectoris [Unknown]
  - Paraesthesia [Recovered/Resolved]
  - Hypomagnesaemia [Recovered/Resolved]
